FAERS Safety Report 17519192 (Version 1)
Quarter: 2020Q1

REPORT INFORMATION
  Report Type: Spontaneous
  Country: US (occurrence: US)
  Receive Date: 20200310
  Receipt Date: 20200310
  Transmission Date: 20200409
  Serious: No
  Sender: FDA-Public Use
  Company Number: US-009507513-2003USA000736

PATIENT
  Age: 21 Year
  Sex: Female
  Weight: 126.53 kg

DRUGS (2)
  1. NEXPLANON [Suspect]
     Active Substance: ETONOGESTREL
     Dosage: 1 IMPLANT
     Route: 059
     Dates: start: 20140514
  2. NEXPLANON [Suspect]
     Active Substance: ETONOGESTREL
     Dosage: 1 IMPLANT
     Route: 059
     Dates: start: 20140514

REACTIONS (5)
  - Complication associated with device [Not Recovered/Not Resolved]
  - Incorrect product administration duration [Unknown]
  - Device deployment issue [Not Recovered/Not Resolved]
  - Weight increased [Unknown]
  - Complication of device removal [Not Recovered/Not Resolved]

NARRATIVE: CASE EVENT DATE: 20170514
